FAERS Safety Report 22222746 (Version 1)
Quarter: 2023Q2

REPORT INFORMATION
  Report Type: Report from Study
  Country: BR (occurrence: BR)
  Receive Date: 20230418
  Receipt Date: 20230418
  Transmission Date: 20230722
  Serious: Yes (Other)
  Sender: FDA-Public Use
  Company Number: BR-GILEAD-2023-0624751

PATIENT
  Age: 46 Year
  Sex: Female

DRUGS (1)
  1. SOFOSBUVIR [Suspect]
     Active Substance: SOFOSBUVIR
     Indication: Hepatitis C
     Dosage: 400 MG
     Route: 065
     Dates: start: 202105, end: 202108

REACTIONS (2)
  - Hepatitis C [Unknown]
  - Drug ineffective [Unknown]
